FAERS Safety Report 19770153 (Version 2)
Quarter: 2021Q3

REPORT INFORMATION
  Report Type: Spontaneous
  Country: NL (occurrence: NL)
  Receive Date: 20210831
  Receipt Date: 20210831
  Transmission Date: 20211014
  Serious: Yes (Hospitalization)
  Sender: FDA-Public Use
  Company Number: NL-MYLANLABS-2021M1057426

PATIENT
  Age: 61 Year
  Sex: Male

DRUGS (6)
  1. SILDENAFIL. [Suspect]
     Active Substance: SILDENAFIL
     Dosage: ON COMPASSIONATE GROUNDS, HE RECEIVED HIGH?DOSE OF SILDENAFIL
     Route: 065
  2. SILDENAFIL. [Suspect]
     Active Substance: SILDENAFIL
     Indication: PULMONARY HYPERTENSION
     Dosage: 60 MILLIGRAM, QD, AT A MAXIMUM TOLERATED DAILY DOSE
     Route: 065
  3. SACUBITRIL VALSARTAN SODIUM HYDRATE [Suspect]
     Active Substance: SACUBITRIL\VALSARTAN
     Indication: PULMONARY HYPERTENSION
     Dosage: 1 DOSAGE FORM, QD, AT A MAXIMUM TOLERATED DAILY DOSE
     Route: 065
  4. BUMETANIDE. [Suspect]
     Active Substance: BUMETANIDE
     Indication: PULMONARY HYPERTENSION
     Dosage: 7.5 MILLIGRAM, QD, MAXIMUM TOLERATED DAILY DOSE
     Route: 065
  5. BUMETANIDE. [Suspect]
     Active Substance: BUMETANIDE
     Indication: DIURETIC THERAPY
  6. EPLERENONE. [Suspect]
     Active Substance: EPLERENONE
     Indication: PULMONARY HYPERTENSION
     Dosage: 50 MILLIGRAM, QD
     Route: 065

REACTIONS (2)
  - Off label use [Unknown]
  - Drug ineffective [Unknown]
